FAERS Safety Report 5780634-2 (Version None)
Quarter: 2008Q2

REPORT INFORMATION
  Report Type: 
  Country: None (occurrence: None)
  Receive Date: 20080620
  Receipt Date: 20080617
  Transmission Date: 20081010
  Serious: Yes (Hospitalization)
  Sender: FDA-Public Use
  Company Number: FR-BOEHRINGER INGELHEIM GMBH, GERMANY-2008-BP-09376RO

PATIENT
  Age: 69 Year
  Sex: Female
  Weight: 54 kg

DRUGS (7)
  1. LITHIUM CARBONATE [Suspect]
     Indication: BIPOLAR I DISORDER
  2. ISOTONIC GLUCOSE [Concomitant]
  3. INDOMETHACIN [Concomitant]
     Indication: DRUG TOXICITY
  4. INDOMETHACIN [Concomitant]
     Indication: NEPHROGENIC DIABETES INSIPIDUS
  5. HYDROCHLOROTHIAZIDE [Concomitant]
     Indication: DRUG TOXICITY
  6. HYDROCHLOROTHIAZIDE [Concomitant]
     Indication: NEPHROGENIC DIABETES INSIPIDUS
  7. SERTRALINE [Concomitant]
     Indication: BIPOLAR I DISORDER

REACTIONS (5)
  - ANAEMIA HAEMOLYTIC AUTOIMMUNE [None]
  - BLOOD PARATHYROID HORMONE INCREASED [None]
  - DRUG TOXICITY [None]
  - HYPERCALCAEMIA [None]
  - NEPHROGENIC DIABETES INSIPIDUS [None]
